FAERS Safety Report 11922344 (Version 2)
Quarter: 2016Q1

REPORT INFORMATION
  Report Type: Spontaneous
  Country: US (occurrence: US)
  Receive Date: 20160115
  Receipt Date: 20160125
  Transmission Date: 20160526
  Serious: Yes (Hospitalization)
  Sender: FDA-Public Use
  Company Number: US-PFIZER INC-2016012285

PATIENT
  Age: 56 Year
  Sex: Male

DRUGS (4)
  1. OMEPRAZOLE. [Suspect]
     Active Substance: OMEPRAZOLE
     Dosage: UNK
  2. ATORVASTATIN CALCIUM. [Suspect]
     Active Substance: ATORVASTATIN CALCIUM
     Dosage: UNK
  3. MOTRIN [Suspect]
     Active Substance: IBUPROFEN
     Dosage: UNK
  4. FLEXERIL [Suspect]
     Active Substance: CYCLOBENZAPRINE HYDROCHLORIDE
     Dosage: UNK

REACTIONS (1)
  - Neoplasm malignant [Unknown]
